FAERS Safety Report 8199637-6 (Version None)
Quarter: 2012Q1

REPORT INFORMATION
  Report Type: 
  Country: None (occurrence: None)
  Receive Date: 20120311
  Receipt Date: 20120305
  Transmission Date: 20120608
  Serious: Yes (Hospitalization, Other)
  Sender: FDA-Public Use
  Company Number: JP-TEVA-2011004334

PATIENT
  Sex: Female
  Weight: 65 kg

DRUGS (18)
  1. SULFAMETHOXAZOLE + TRIMETHOPRIM [Concomitant]
  2. URSODIOL [Concomitant]
  3. AMPHOTERICIN B [Concomitant]
     Dates: start: 20110119
  4. FLAVINE ADENINE DINUCLEOTIDE DISODIUM [Concomitant]
     Dates: start: 20110131
  5. AMLODIPINE BESILATE [Concomitant]
  6. ACYCLOVIR [Concomitant]
     Dates: start: 20110119
  7. RITUXIMAB [Suspect]
     Indication: B-CELL LYMPHOMA
     Dates: start: 20110117
  8. ADENOSINE TRIPHOSPHATE, DISODIUM SALT [Concomitant]
     Dates: start: 20110123
  9. FAMOTIDINE [Concomitant]
  10. MOSAPRIDE CITRATE [Concomitant]
  11. PRAVASTATIN SODIUM [Concomitant]
  12. POLYETHYLENE GLYCOL [Concomitant]
     Dates: start: 20110202, end: 20110202
  13. TREANDA [Suspect]
     Indication: B-CELL LYMPHOMA
     Route: 042
     Dates: start: 20110119, end: 20110413
  14. POVIDONE IODINE [Concomitant]
     Dates: start: 20110126
  15. PYRIDOXAL PHOSPHATE [Concomitant]
     Dates: start: 20110131
  16. MAGNESIUM OXIDE [Concomitant]
  17. GRANISETRON HCL [Concomitant]
     Dates: start: 20110119, end: 20110210
  18. SENNOSIDE [Concomitant]

REACTIONS (6)
  - PLATELET COUNT DECREASED [None]
  - NAUSEA [None]
  - WHITE BLOOD CELL COUNT DECREASED [None]
  - HAEMOLYTIC ANAEMIA [None]
  - AGRANULOCYTOSIS [None]
  - NEUTROPHIL COUNT DECREASED [None]
